FAERS Safety Report 23870315 (Version 1)
Quarter: 2024Q2

REPORT INFORMATION
  Report Type: Spontaneous
  Country: US (occurrence: US)
  Receive Date: 20240517
  Receipt Date: 20240517
  Transmission Date: 20240716
  Serious: Yes (Hospitalization)
  Sender: FDA-Public Use
  Company Number: US-NEUROCRINE BIOSCIENCES INC.-2024NBI04793

PATIENT
  Age: 39 Year
  Sex: Female

DRUGS (19)
  1. INGREZZA [Suspect]
     Active Substance: VALBENAZINE
     Indication: Tardive dyskinesia
     Dosage: 80 MILLIGRAM, QD
     Route: 048
     Dates: start: 20231005
  2. CLOZARIL [Concomitant]
     Active Substance: CLOZAPINE
     Indication: Schizophrenia
     Dosage: 450 MILLIGRAM, QD
     Route: 048
     Dates: start: 20180221
  3. MOBIC [Concomitant]
     Active Substance: MELOXICAM
     Indication: Pain
     Dosage: 15 MILLIGRAM, QD
     Route: 048
     Dates: start: 20180719
  4. BACTROBAN [Concomitant]
     Active Substance: MUPIROCIN CALCIUM
     Indication: Infection
     Dosage: 2 PERCENT, BID
     Route: 061
     Dates: start: 20240117
  5. IMITREX [Concomitant]
     Active Substance: SUMATRIPTAN SUCCINATE
     Indication: Migraine
     Dosage: 100 MILLIGRAM, PRN
     Route: 048
     Dates: start: 20231117
  6. LYRICA [Concomitant]
     Active Substance: PREGABALIN
     Indication: Seizure
     Dosage: 150 MILLIGRAM, BID
     Route: 048
     Dates: start: 20231207
  7. NARCAN [Concomitant]
     Active Substance: NALOXONE HYDROCHLORIDE
     Indication: Overdose
     Dosage: 4 MILLIGRAM, PRN
     Dates: start: 20231005
  8. HALDOL [Concomitant]
     Active Substance: HALOPERIDOL
     Indication: Schizophrenia
     Dosage: 4 MILLIGRAM, Q6H
     Route: 048
     Dates: start: 20230909, end: 20240208
  9. SEROQUEL [Concomitant]
     Active Substance: QUETIAPINE FUMARATE
     Indication: Schizophrenia
     Dosage: 900 MILLIGRAM, QHS
     Route: 048
     Dates: start: 20160101, end: 20240208
  10. RITALIN [Concomitant]
     Active Substance: METHYLPHENIDATE HYDROCHLORIDE
     Dosage: 60 MILLIGRAM, QD
     Route: 048
     Dates: start: 20230309
  11. LUVOX [Concomitant]
     Active Substance: FLUVOXAMINE MALEATE
     Dosage: 50 MILLIGRAM, QHS
     Route: 048
     Dates: start: 20240118
  12. FLEXERIL [Concomitant]
     Active Substance: CYCLOBENZAPRINE HYDROCHLORIDE
     Indication: Muscle relaxant therapy
     Dosage: 20 MILLIGRAM, TID
     Route: 048
     Dates: start: 20230607
  13. HYDROCORTISONE [Concomitant]
     Active Substance: HYDROCORTISONE
     Indication: Inflammation
     Dosage: 0.1 MILLIGRAM, QD
     Route: 048
     Dates: start: 20231107
  14. SYNTHROID [Concomitant]
     Active Substance: LEVOTHYROXINE SODIUM
     Indication: Hypothyroidism
     Dosage: 50 MICROGRAM, QD
     Route: 048
     Dates: start: 20230909
  15. TOPAMAX [Concomitant]
     Active Substance: TOPIRAMATE
     Indication: Seizure
     Dosage: 100 MILLIGRAM, BID
     Route: 048
     Dates: start: 20231117
  16. NORCO [Concomitant]
     Active Substance: ACETAMINOPHEN\HYDROCODONE BITARTRATE
     Indication: Pain
     Dosage: 300/60MG QD
     Route: 048
     Dates: start: 20231207
  17. BUTRANS [Concomitant]
     Active Substance: BUPRENORPHINE
     Indication: Pain
     Dosage: 15 MICROGRAM, QW
     Route: 061
     Dates: start: 20231012
  18. CELEBREX [Concomitant]
     Active Substance: CELECOXIB
     Indication: Pain
     Dosage: 100 MILLIGRAM, BID
     Route: 048
     Dates: start: 20231207
  19. ERENUMAB [Concomitant]
     Active Substance: ERENUMAB
     Indication: Migraine
     Dosage: 140 MILLIGRAM, QD
     Route: 058
     Dates: start: 20231107, end: 20240118

REACTIONS (4)
  - Depressive symptom [Recovered/Resolved with Sequelae]
  - Suicidal ideation [Recovered/Resolved with Sequelae]
  - Hallucination [Recovered/Resolved with Sequelae]
  - Muscular weakness [Recovered/Resolved]

NARRATIVE: CASE EVENT DATE: 20240118
